FAERS Safety Report 7569156-6 (Version None)
Quarter: 2011Q2

REPORT INFORMATION
  Report Type: 
  Country: None (occurrence: None)
  Receive Date: 20110623
  Receipt Date: 20110609
  Transmission Date: 20111010
  Serious: Yes (Other)
  Sender: FDA-Public Use
  Company Number: PHHY2011CA42621

PATIENT
  Sex: Female

DRUGS (1)
  1. ZOLEDRONIC ACID [Suspect]
     Dosage: 5 MG, UNK
     Route: 042

REACTIONS (4)
  - FATIGUE [None]
  - ABDOMINAL PAIN [None]
  - GENERAL PHYSICAL CONDITION ABNORMAL [None]
  - PANCREATIC CARCINOMA [None]
